FAERS Safety Report 7496302-5 (Version None)
Quarter: 2011Q2

REPORT INFORMATION
  Report Type: 
  Country: None (occurrence: None)
  Receive Date: 20110523
  Receipt Date: 20110517
  Transmission Date: 20111010
  Serious: Yes (Other)
  Sender: FDA-Public Use
  Company Number: US-PFIZER INC-2011106055

PATIENT
  Sex: Male
  Weight: 94 kg

DRUGS (2)
  1. LIPITOR [Suspect]
     Indication: BLOOD CHOLESTEROL INCREASED
     Dosage: 80 MG, DAILY
     Route: 048
     Dates: start: 20100701, end: 20110501
  2. FISH OIL [Concomitant]
     Dosage: UNK

REACTIONS (5)
  - GASTRIC DISORDER [None]
  - NAUSEA [None]
  - OCULAR ICTERUS [None]
  - MALAISE [None]
  - TENDON RUPTURE [None]
